FAERS Safety Report 13541709 (Version 1)
Quarter: 2017Q2

REPORT INFORMATION
  Report Type: Spontaneous
  Country: US (occurrence: US)
  Receive Date: 20170512
  Receipt Date: 20170512
  Transmission Date: 20170830
  Serious: No
  Sender: FDA-Public Use
  Company Number: US-ELI_LILLY_AND_COMPANY-US201705003063

PATIENT
  Sex: Male

DRUGS (2)
  1. DULAGLUTIDE. [Suspect]
     Active Substance: DULAGLUTIDE
     Indication: WEIGHT DECREASED
  2. DULAGLUTIDE. [Suspect]
     Active Substance: DULAGLUTIDE
     Indication: GLUCOSE TOLERANCE IMPAIRED
     Dosage: 0.75 MG, WEEKLY (1/W)
     Route: 058
     Dates: start: 201701

REACTIONS (4)
  - Wrong technique in product usage process [Unknown]
  - Underdose [Recovered/Resolved]
  - Off label use [Unknown]
  - Injection site pain [Recovered/Resolved]
